FAERS Safety Report 16192848 (Version 14)
Quarter: 2020Q4

REPORT INFORMATION
  Report Type: Other
  Country: CA (occurrence: CA)
  Receive Date: 20190412
  Receipt Date: 20201023
  Transmission Date: 20210113
  Serious: Yes (Hospitalization, Other)
  Sender: FDA-Public Use
  Company Number: CA-ROCHE-2301764

PATIENT
  Age: 71 Year
  Sex: Female

DRUGS (14)
  1. PREDNISONE. [Suspect]
     Active Substance: PREDNISONE
     Indication: PRODUCT USED FOR UNKNOWN INDICATION
     Route: 048
     Dates: start: 20181221
  2. BISOPROLOL SANDOZ [Concomitant]
     Active Substance: BISOPROLOL
     Indication: TENSION
     Dosage: 1 DF (10+), QD
     Route: 048
     Dates: start: 20170217
  3. XOLAIR [Suspect]
     Active Substance: OMALIZUMAB
     Route: 058
     Dates: start: 20190403
  4. XOLAIR [Suspect]
     Active Substance: OMALIZUMAB
     Route: 058
     Dates: start: 20190926
  5. XOLAIR [Suspect]
     Active Substance: OMALIZUMAB
     Route: 058
     Dates: start: 20190606
  6. XOLAIR [Suspect]
     Active Substance: OMALIZUMAB
     Route: 058
     Dates: start: 20190829
  7. ZANTAC [Concomitant]
     Active Substance: RANITIDINE HYDROCHLORIDE
     Indication: PRODUCT USED FOR UNKNOWN INDICATION
     Dosage: UNK UNK, BID
     Route: 048
     Dates: start: 20170706
  8. XOLAIR [Suspect]
     Active Substance: OMALIZUMAB
     Route: 058
     Dates: start: 20190304
  9. XOLAIR [Suspect]
     Active Substance: OMALIZUMAB
     Route: 058
     Dates: start: 20200109, end: 20200109
  10. HYDROCHLOROTHIAZIDE. [Concomitant]
     Active Substance: HYDROCHLOROTHIAZIDE
     Indication: PRODUCT USED FOR UNKNOWN INDICATION
     Dosage: 50 OT, OTHER
     Route: 065
  11. XOLAIR [Suspect]
     Active Substance: OMALIZUMAB
     Indication: CHRONIC SPONTANEOUS URTICARIA
     Route: 058
     Dates: start: 20190204
  12. XOLAIR [Suspect]
     Active Substance: OMALIZUMAB
     Route: 058
     Dates: start: 20200429
  13. BILASTINE [Concomitant]
     Active Substance: BILASTINE
     Indication: PRODUCT USED FOR UNKNOWN INDICATION
     Dosage: 20 MG, QD
     Route: 065
     Dates: start: 20181114
  14. SPIRIVA [Concomitant]
     Active Substance: TIOTROPIUM BROMIDE MONOHYDRATE
     Indication: PRODUCT USED FOR UNKNOWN INDICATION
     Dosage: UNK UNK, BID
     Route: 055
     Dates: start: 20170308

REACTIONS (23)
  - Scratch [Unknown]
  - Dizziness [Unknown]
  - Hypoacusis [Unknown]
  - Feeling abnormal [Unknown]
  - Eye swelling [Unknown]
  - Skin exfoliation [Unknown]
  - Swelling face [Unknown]
  - Swelling [Unknown]
  - Peripheral swelling [Recovering/Resolving]
  - Dry skin [Unknown]
  - Dyspnoea [Unknown]
  - Balance disorder [Unknown]
  - Mouth swelling [Unknown]
  - Urticaria [Recovered/Resolved]
  - Skin discolouration [Unknown]
  - Malaise [Unknown]
  - Lip swelling [Recovered/Resolved]
  - Hypersensitivity [Unknown]
  - Fatigue [Unknown]
  - Erythema [Unknown]
  - Pain in extremity [Unknown]
  - Pruritus [Unknown]
  - Blood pressure systolic increased [Unknown]

NARRATIVE: CASE EVENT DATE: 20190204
